FAERS Safety Report 12258016 (Version 1)
Quarter: 2016Q2

REPORT INFORMATION
  Report Type: Spontaneous
  Country: US (occurrence: US)
  Receive Date: 20160412
  Receipt Date: 20160412
  Transmission Date: 20160815
  Serious: Yes (Other)
  Sender: FDA-Public Use
  Company Number: US-BAYER-2016-064789

PATIENT
  Age: 68 Year
  Sex: Female
  Weight: 45.35 kg

DRUGS (1)
  1. ALEVE [Suspect]
     Active Substance: NAPROXEN SODIUM
     Indication: ANALGESIC THERAPY
     Dosage: 1 DF, PRN
     Route: 048
     Dates: start: 2015, end: 2015

REACTIONS (2)
  - Hypersensitivity [Recovered/Resolved]
  - Rash macular [Recovered/Resolved]
